FAERS Safety Report 23046244 (Version 1)
Quarter: 2023Q4

REPORT INFORMATION
  Report Type: Other
  Country: CH (occurrence: None)
  Receive Date: 20231009
  Receipt Date: 20231009
  Transmission Date: 20240110
  Serious: Yes (Hospitalization, Other)
  Sender: FDA-Public Use
  Company Number: CH-ROCHE-3435632

PATIENT
  Age: 6 Decade
  Sex: Female

DRUGS (11)
  1. ATEZOLIZUMAB [Suspect]
     Active Substance: ATEZOLIZUMAB
     Indication: Malignant melanoma
     Route: 065
     Dates: start: 202204
  2. VEMURAFENIB [Suspect]
     Active Substance: VEMURAFENIB
     Indication: Malignant melanoma
     Route: 065
     Dates: start: 202204
  3. COBIMETINIB [Suspect]
     Active Substance: COBIMETINIB
     Indication: Malignant melanoma
     Route: 065
     Dates: start: 202204
  4. NIVOLUMAB [Concomitant]
     Active Substance: NIVOLUMAB
  5. IPILIMUMAB [Concomitant]
     Active Substance: IPILIMUMAB
  6. PREDNISONE [Concomitant]
     Active Substance: PREDNISONE
  7. PREDNISONE [Concomitant]
     Active Substance: PREDNISONE
  8. PREDNISONE [Concomitant]
     Active Substance: PREDNISONE
  9. ENCORAFENIB [Concomitant]
     Active Substance: ENCORAFENIB
  10. BINIMETINIB [Concomitant]
     Active Substance: BINIMETINIB
  11. DEXAMETHASONE [Concomitant]
     Active Substance: DEXAMETHASONE

REACTIONS (4)
  - Liver abscess [Recovered/Resolved]
  - Cholangitis sclerosing [Unknown]
  - Metastases to central nervous system [Unknown]
  - Disease progression [Unknown]
